FAERS Safety Report 5260877-7 (Version None)
Quarter: 2007Q1

REPORT INFORMATION
  Report Type: 
  Country: None (occurrence: None)
  Receive Date: 20070309
  Receipt Date: 20070302
  Transmission Date: 20070707
  Serious: Yes (Hospitalization)
  Sender: FDA-Public Use
  Company Number: AU-AVENTIS-200622666GDDC

PATIENT
  Age: 73 Year
  Sex: Male
  Weight: 72 kg

DRUGS (10)
  1. DOCETAXEL [Suspect]
     Route: 042
     Dates: start: 20060904, end: 20061019
  2. INVESTIGATIONAL DRUG [Suspect]
     Dosage: DOSE: 250 MG/4 DAYS WEEK
     Route: 058
     Dates: start: 20060904, end: 20061029
  3. PREDNISONE [Suspect]
     Dates: start: 20060904
  4. STEMETIL                           /00013301/ [Concomitant]
     Indication: NAUSEA
     Dosage: DOSE: 5-15 MG
     Route: 054
     Dates: start: 20061019
  5. ONDANSETRON [Concomitant]
     Indication: NAUSEA
     Dosage: DOSE: 8-16 MG
     Dates: start: 20060904
  6. COVERSYL                           /00790701/ [Concomitant]
     Indication: HYPERTENSION
     Dates: start: 20040101
  7. COVERSYL PLUS [Concomitant]
     Indication: HYPERTENSION
     Dosage: DOSE: 4 /1.25 MG
     Dates: start: 20040101
  8. SLOW-K [Concomitant]
     Dosage: DOSE: 1-2 GM
     Dates: start: 20040101
  9. LIPITOR [Concomitant]
     Dates: start: 20060101
  10. MOVICOL                            /01053601/ [Concomitant]
     Indication: CONSTIPATION
     Dosage: DOSE: 1-2 SACHETS
     Dates: start: 20061019

REACTIONS (2)
  - DYSURIA [None]
  - POLYURIA [None]
